FAERS Safety Report 5109704-9 (Version None)
Quarter: 2006Q3

REPORT INFORMATION
  Report Type: 
  Country: None (occurrence: None)
  Receive Date: 20060918
  Receipt Date: 20060906
  Transmission Date: 20061208
  Serious: Yes (Hospitalization)
  Sender: FDA-Public Use
  Company Number: JP200607003135

PATIENT
  Age: 60 Year
  Sex: Male

DRUGS (11)
  1. ZYPREXA [Suspect]
     Indication: SCHIZOPHRENIA
     Dosage: 10 MG, DAILY (1/D), ORAL
     Route: 048
     Dates: start: 20020116, end: 20060706
  2. LODOPIN              (ZOTEPINE) [Concomitant]
  3. HALOPERIDOL [Concomitant]
  4. TASMOLIN                  (BIPERIDEN) [Concomitant]
  5. DIHYDERGOT                  (DIHYDROERGOTAMINE MESILATE) [Concomitant]
  6. METLIGINE                (MIDODRINE HYDROCHLORIDE) [Concomitant]
  7. MAGNESIUM OXIDE                   (MAGNESIUM OXIDE) [Concomitant]
  8. BESACOLIN                    (BETHANECHOL CHLORIDE) [Concomitant]
  9. GLORIAMIN              (AZULENE SODIUM SULFONATE, LEVOGLUTAMINE) [Concomitant]
  10. LEVOTOMIN                (LEVOMEPROMAZINE MALEATE) [Concomitant]
  11. AMOBAN (ZOPICLONE) [Concomitant]

REACTIONS (6)
  - ANAEMIA [None]
  - BLOOD ALKALINE PHOSPHATASE INCREASED [None]
  - DECREASED APPETITE [None]
  - GASTRIC ULCER HAEMORRHAGE [None]
  - HYPERGLYCAEMIA [None]
  - INSOMNIA [None]
